FAERS Safety Report 6043934-7 (Version None)
Quarter: 2009Q1

REPORT INFORMATION
  Report Type: 
  Country: None (occurrence: None)
  Receive Date: 20090120
  Receipt Date: 20090114
  Transmission Date: 20090719
  Serious: Yes (Death)
  Sender: FDA-Public Use
  Company Number: JP-BRISTOL-MYERS SQUIBB COMPANY-14471759

PATIENT
  Age: 67 Year
  Sex: Female

DRUGS (3)
  1. BRIPLATIN [Suspect]
     Indication: BLADDER TRANSITIONAL CELL CARCINOMA
     Route: 041
  2. VEPESID [Suspect]
     Indication: BLADDER TRANSITIONAL CELL CARCINOMA
     Route: 041
  3. METHOTREXATE [Concomitant]

REACTIONS (1)
  - HAEMOLYTIC URAEMIC SYNDROME [None]
